FAERS Safety Report 10824236 (Version 1)
Quarter: 2015Q1

REPORT INFORMATION
  Report Type: Spontaneous
  Country: US (occurrence: US)
  Receive Date: 20150219
  Receipt Date: 20150219
  Transmission Date: 20150721
  Serious: No
  Sender: FDA-Public Use
  Company Number: US-ABBVIE-14K-163-1315258-00

PATIENT
  Sex: Female

DRUGS (3)
  1. HUMIRA [Suspect]
     Active Substance: ADALIMUMAB
     Indication: PRODUCT USE ISSUE
     Dosage: DOSE INCREASED
     Route: 058
     Dates: start: 201411, end: 20141112
  2. CELLCEPT [Suspect]
     Active Substance: MYCOPHENOLATE MOFETIL\MYCOPHENOLATE MOFETIL HYDROCHLORIDE
     Indication: UVEITIS
     Dosage: TAPER
     Route: 065
  3. HUMIRA [Suspect]
     Active Substance: ADALIMUMAB
     Indication: UVEITIS
     Route: 058
     Dates: start: 201406, end: 201411

REACTIONS (2)
  - Off label use [Not Recovered/Not Resolved]
  - Uveitis [Not Recovered/Not Resolved]

NARRATIVE: CASE EVENT DATE: 201406
